FAERS Safety Report 8483507-X (Version None)
Quarter: 2012Q3

REPORT INFORMATION
  Report Type: 
  Country: None (occurrence: None)
  Receive Date: 20120702
  Receipt Date: 20120621
  Transmission Date: 20120928
  Serious: Yes (Hospitalization)
  Sender: FDA-Public Use
  Company Number: NL-FRI-1000036742

PATIENT
  Sex: Male
  Weight: 82 kg

DRUGS (4)
  1. CITALOPRAM HYDROBROMIDE [Suspect]
     Indication: DEPRESSION
     Dosage: 10 MG
     Route: 048
     Dates: start: 20120212
  2. CITALOPRAM HYDROBROMIDE [Suspect]
     Dosage: 30 MG
     Route: 048
     Dates: end: 20120616
  3. CITALOPRAM HYDROBROMIDE [Suspect]
     Dosage: 20 MG
     Route: 048
  4. CITALOPRAM HYDROBROMIDE [Suspect]
     Dosage: 16 TABLET AT ONCE
     Dates: start: 20120515, end: 20120515

REACTIONS (2)
  - INTENTIONAL OVERDOSE [None]
  - ALCOHOLISM [None]
